FAERS Safety Report 12963969 (Version 2)
Quarter: 2016Q4

REPORT INFORMATION
  Report Type: Spontaneous
  Country: NO (occurrence: NO)
  Receive Date: 20161122
  Receipt Date: 20161128
  Transmission Date: 20170207
  Serious: Yes (Hospitalization)
  Sender: FDA-Public Use
  Company Number: PHHY2016NO157720

PATIENT
  Sex: Female

DRUGS (2)
  1. TAFINLAR [Suspect]
     Active Substance: DABRAFENIB MESYLATE
     Indication: PRODUCT USED FOR UNKNOWN INDICATION
     Dosage: 75 MG, UNK
     Route: 065
  2. MEKINIST [Suspect]
     Active Substance: TRAMETINIB DIMETHYL SULFOXIDE
     Indication: PRODUCT USED FOR UNKNOWN INDICATION
     Dosage: 2 MG, UNK
     Route: 065

REACTIONS (9)
  - C-reactive protein increased [Unknown]
  - Erythema [Recovering/Resolving]
  - Chills [Unknown]
  - Incorrect product storage [Unknown]
  - Nausea [Recovering/Resolving]
  - Pyrexia [Unknown]
  - Diarrhoea [Recovering/Resolving]
  - Muscle spasms [Unknown]
  - Vomiting [Recovering/Resolving]
